FAERS Safety Report 8271714 (Version 2)
Quarter: 2012Q4

REPORT INFORMATION
  Report Type: 
  Country: FR (occurrence: FR)
  Receive Date: 20111201
  Receipt Date: 20121121
  Transmission Date: 20130627
  Serious: Yes (Hospitalization)
  Sender: FDA-Public Use
  Company Number: FR-GILEAD-2011-0046977

PATIENT
  Age: 55 Year
  Sex: Male

DRUGS (12)
  1. TRUVADA [Suspect]
     Indication: HIV INFECTION
     Dosage: UNK
     Route: 048
     Dates: start: 20110413, end: 20111110
  2. NORVIR [Concomitant]
     Indication: HIV INFECTION
     Dosage: UNK UNK, QD
     Dates: start: 20110413
  3. PREZISTA                           /05513802/ [Concomitant]
     Dosage: UNK UNK, BID
     Route: 048
     Dates: start: 20110413
  4. ANSATIPINE [Concomitant]
     Indication: LATENT TUBERCULOSIS
     Dosage: UNK UNK, QD
     Route: 048
     Dates: start: 20111001, end: 20111114
  5. RIMIFON [Concomitant]
  6. BACTRIM [Concomitant]
  7. NEURONTIN [Concomitant]
  8. LYRICA [Concomitant]
  9. AMLOR [Concomitant]
  10. XATRAL [Concomitant]
  11. LEXOMIL [Concomitant]
  12. STILNOX [Concomitant]

REACTIONS (2)
  - Bicytopenia [Recovered/Resolved]
  - Fanconi syndrome acquired [Recovered/Resolved]
